FAERS Safety Report 21771434 (Version 2)
Quarter: 2022Q4

REPORT INFORMATION
  Report Type: Report from Study
  Country: US (occurrence: US)
  Receive Date: 20221223
  Receipt Date: 20221230
  Transmission Date: 20230113
  Serious: Yes (Other)
  Sender: FDA-Public Use
  Company Number: US-TEVA-2022-US-2839152

PATIENT
  Age: 28 Year
  Sex: Female

DRUGS (2)
  1. CLARAVIS [Suspect]
     Active Substance: ISOTRETINOIN
     Indication: Product used for unknown indication
     Dosage: 80 MILLIGRAM DAILY; MYLAN/AMNESTEEM
     Route: 065
     Dates: start: 20211223, end: 20220112
  2. CLARAVIS [Suspect]
     Active Substance: ISOTRETINOIN
     Dates: start: 2019, end: 2019

REACTIONS (1)
  - Unintended pregnancy [Unknown]
